FAERS Safety Report 12597061 (Version 3)
Quarter: 2016Q3

REPORT INFORMATION
  Report Type: Spontaneous
  Country: US (occurrence: US)
  Receive Date: 20160726
  Receipt Date: 20160920
  Transmission Date: 20161109
  Serious: Yes (Death, Hospitalization, Other)
  Sender: FDA-Public Use
  Company Number: US-SAOL THERAPEUTICS-2016SAO00249

PATIENT
  Sex: Male

DRUGS (10)
  1. BACLOFEN. [Suspect]
     Active Substance: BACLOFEN
     Indication: MUSCLE SPASTICITY
     Dosage: 2000 ?G/ML
     Route: 037
  2. PAXIL [Concomitant]
     Active Substance: PAROXETINE HYDROCHLORIDE
     Dosage: 10 MG, 1X/DAY
     Route: 048
     Dates: start: 20150715
  3. COLACE [Concomitant]
     Active Substance: DOCUSATE SODIUM
     Dosage: 250 MG, 2X/DAY
     Route: 048
     Dates: start: 20150715
  4. BACLOFEN. [Concomitant]
     Active Substance: BACLOFEN
     Dosage: 20 MG, UP TO 4X/DAY
     Route: 048
     Dates: start: 20150715
  5. NORCO [Concomitant]
     Active Substance: ACETAMINOPHEN\HYDROCODONE BITARTRATE
     Dosage: 5/325 1-2 TABLETS EVERY 4 HOURS AS NEEDED
  6. SYMMETREL [Concomitant]
     Active Substance: AMANTADINE HYDROCHLORIDE
     Dosage: 100 MG, 2X/DAY
     Dates: start: 20150715
  7. SILVADENE [Concomitant]
     Active Substance: SILVER SULFADIAZINE
     Dosage: 1 %, 2X/DAY
     Route: 061
  8. BACLOFEN. [Suspect]
     Active Substance: BACLOFEN
     Indication: CRANIOCEREBRAL INJURY
  9. TYLENOL [Concomitant]
     Active Substance: ACETAMINOPHEN
     Dosage: 650 MG, 6X/DAY
     Route: 048
  10. ARICEPT [Concomitant]
     Active Substance: DONEPEZIL HYDROCHLORIDE
     Dosage: 10 MG, 1X/DAY
     Route: 048
     Dates: start: 20150715

REACTIONS (17)
  - Wound drainage [Unknown]
  - Device kink [Unknown]
  - Asthenia [Unknown]
  - Fall [Unknown]
  - Pain [Unknown]
  - Cognitive disorder [Unknown]
  - Tremor [Unknown]
  - Muscle spasticity [Unknown]
  - Musculoskeletal disorder [Unknown]
  - Device malfunction [Unknown]
  - Hypertonia [Unknown]
  - Hypotonia [Unknown]
  - Activities of daily living impaired [Unknown]
  - Cardiac arrest [Fatal]
  - Therapeutic response decreased [Unknown]
  - Drug effect increased [Unknown]
  - Clonus [Unknown]
